FAERS Safety Report 5768050-0 (Version None)
Quarter: 2008Q2

REPORT INFORMATION
  Report Type: 
  Country: None (occurrence: None)
  Receive Date: 20080601
  Receipt Date: 20080307
  Transmission Date: 20081010
  Serious: No
  Sender: FDA-Public Use
  Company Number: US200803002603

PATIENT
  Age: 47 Year
  Sex: Female

DRUGS (5)
  1. BYETTA [Suspect]
     Dosage: 15 UG, 2/D, SUBCUTANEOUS : 10 UG, 2/D SUBCUTANEOUS
     Route: 058
     Dates: start: 20060101, end: 20060101
  2. BYETTA [Suspect]
     Dosage: 15 UG, 2/D, SUBCUTANEOUS : 10 UG, 2/D SUBCUTANEOUS
     Route: 058
     Dates: start: 20060101
  3. EXENATIDE PEN, DISPOSABLE DEVICE (EXENATIDE PEN) PEN, DISPOSABLE [Concomitant]
  4. METFORMIN HCL [Concomitant]
  5. NPH INSULIN (INSULIN INJECTION, ISOPHANE) [Concomitant]

REACTIONS (3)
  - NEPHROLITHIASIS [None]
  - PAIN [None]
  - VISUAL DISTURBANCE [None]
